FAERS Safety Report 13504122 (Version 15)
Quarter: 2021Q3

REPORT INFORMATION
  Report Type: Report from Study
  Country: CA (occurrence: CA)
  Receive Date: 20170502
  Receipt Date: 20210722
  Transmission Date: 20211014
  Serious: Yes (Death, Life-Threatening, Other)
  Sender: FDA-Public Use
  Company Number: PHHY2013CA071807

PATIENT
  Age: 74 Year
  Sex: Male

DRUGS (8)
  1. SANDOSTATIN LAR DEPOT [Suspect]
     Active Substance: OCTREOTIDE ACETATE
     Dosage: 60 MG, QMO (4 WEEKS)
     Route: 030
     Dates: start: 202011
  2. SANDOSTATIN [Suspect]
     Active Substance: OCTREOTIDE ACETATE
     Indication: NEUROENDOCRINE CARCINOMA
     Dosage: 100 UG, ONCE/SINGLE
     Route: 058
     Dates: start: 20130503, end: 20130503
  3. SANDOSTATIN [Suspect]
     Active Substance: OCTREOTIDE ACETATE
  4. SANDOSTATIN LAR DEPOT [Suspect]
     Active Substance: OCTREOTIDE ACETATE
     Indication: NEUROENDOCRINE CARCINOMA
     Dosage: 30 MG, QMO (EVERY 4 WEEKS)
     Route: 030
     Dates: start: 20130509, end: 20151223
  5. SANDOSTATIN LAR DEPOT [Suspect]
     Active Substance: OCTREOTIDE ACETATE
     Dosage: 30 MG (EVERY 4 WEEKS)
     Route: 030
  6. SANDOSTATIN [Suspect]
     Active Substance: OCTREOTIDE ACETATE
  7. SANDOSTATIN LAR DEPOT [Suspect]
     Active Substance: OCTREOTIDE ACETATE
     Dosage: 30 MG, QMO (EVERY 4 WEEKS)
     Route: 030
     Dates: start: 20130509, end: 20201013
  8. DEXTROSE. [Concomitant]
     Active Substance: DEXTROSE
     Indication: PRODUCT USED FOR UNKNOWN INDICATION
     Dosage: UNK
     Route: 065

REACTIONS (41)
  - Somnolence [Unknown]
  - Neuroendocrine carcinoma [Unknown]
  - Body temperature increased [Unknown]
  - Confusional state [Unknown]
  - Movement disorder [Unknown]
  - Asthenia [Recovering/Resolving]
  - Heart rate decreased [Unknown]
  - Abdominal distension [Unknown]
  - Neoplasm progression [Recovered/Resolved]
  - Sinusitis [Unknown]
  - Blood pressure diastolic decreased [Unknown]
  - Abdominal discomfort [Recovered/Resolved]
  - Dental caries [Unknown]
  - Ageusia [Unknown]
  - Headache [Unknown]
  - Dizziness [Unknown]
  - Blood pressure systolic increased [Unknown]
  - Insomnia [Unknown]
  - Erythema [Unknown]
  - Hepatic cancer [Not Recovered/Not Resolved]
  - Metastases to liver [Recovered/Resolved]
  - Metastases to skin [Unknown]
  - Hyperglycaemia [Unknown]
  - Alveolar osteitis [Unknown]
  - Oral candidiasis [Unknown]
  - Jaundice [Unknown]
  - Injection site haemorrhage [Unknown]
  - Incorrect dose administered [Unknown]
  - Death [Fatal]
  - Hypoglycaemia [Unknown]
  - Poor quality sleep [Unknown]
  - Blood glucose decreased [Recovering/Resolving]
  - Toothache [Unknown]
  - Weight decreased [Unknown]
  - Feeling abnormal [Unknown]
  - Fatigue [Recovering/Resolving]
  - Needle issue [Unknown]
  - Hepatic failure [Unknown]
  - Malignant neoplasm progression [Unknown]
  - Hypotension [Unknown]
  - Decreased appetite [Not Recovered/Not Resolved]

NARRATIVE: CASE EVENT DATE: 2014
